FAERS Safety Report 24312001 (Version 1)
Quarter: 2024Q3

REPORT INFORMATION
  Report Type: Spontaneous
  Country: US (occurrence: US)
  Receive Date: 20240912
  Receipt Date: 20240912
  Transmission Date: 20241016
  Serious: Yes (Hospitalization, Other)
  Sender: CB FLEET
  Company Number: US-PRESTIGE-202409-US-002920

PATIENT
  Age: 30 Year
  Sex: Female

DRUGS (2)
  1. CLEAR EYES REDNESS RELIEF [Suspect]
     Active Substance: GLYCERIN\NAPHAZOLINE HYDROCHLORIDE
     Indication: Ocular hyperaemia
     Dosage: 2 DROPS IN ONE EYE AND 1 DROP IN THE OTHER
     Route: 047
  2. CLEAR EYES REDNESS RELIEF [Suspect]
     Active Substance: GLYCERIN\NAPHAZOLINE HYDROCHLORIDE
     Indication: Eye irritation

REACTIONS (1)
  - Blindness transient [Recovering/Resolving]
